FAERS Safety Report 8932771 (Version 1)
Quarter: 2012Q4

REPORT INFORMATION
  Report Type: Spontaneous
  Country: US (occurrence: None)
  Receive Date: 20121126
  Receipt Date: 20121126
  Transmission Date: 20130627
  Serious: Yes (Hospitalization)
  Sender: FDA-Public Use
  Company Number: None

PATIENT
  Age: 63 Year
  Sex: Male
  Weight: 144.3 kg

DRUGS (3)
  1. CEPHALEXIN [Suspect]
     Indication: CELLULITIS
     Route: 048
     Dates: start: 20121101, end: 20121105
  2. TORSEMIDE [Suspect]
     Indication: EDEMA
  3. TORSEMIDE [Suspect]
     Indication: HEART FAILURE

REACTIONS (2)
  - Tubulointerstitial nephritis [None]
  - Eosinophilia [None]
